FAERS Safety Report 15634683 (Version 2)
Quarter: 2018Q4

REPORT INFORMATION
  Report Type: Report from Study
  Country: US (occurrence: US)
  Receive Date: 20181119
  Receipt Date: 20181129
  Transmission Date: 20190205
  Serious: Yes (Hospitalization)
  Sender: FDA-Public Use
  Company Number: US-ACTELION-A-NJ2017-161303

PATIENT
  Age: 61 Year
  Sex: Female
  Weight: 95.24 kg

DRUGS (4)
  1. OPSUMIT [Suspect]
     Active Substance: MACITENTAN
     Indication: PULMONARY ARTERIAL HYPERTENSION
     Dosage: 10 MG, QD
     Route: 048
  2. COUMADIN [Concomitant]
     Active Substance: WARFARIN SODIUM
  3. HUMIRA [Suspect]
     Active Substance: ADALIMUMAB
     Indication: PRODUCT USED FOR UNKNOWN INDICATION
     Route: 065
  4. TYVASO [Concomitant]
     Active Substance: TREPROSTINIL

REACTIONS (17)
  - Rhinorrhoea [Unknown]
  - Anaemia [Unknown]
  - Heart rate irregular [Unknown]
  - White blood cell count increased [Unknown]
  - Sluggishness [Unknown]
  - Fatigue [Unknown]
  - Headache [Unknown]
  - Nausea [Unknown]
  - Pneumonia [Unknown]
  - Neuropathy peripheral [Unknown]
  - Nerve compression [Unknown]
  - Muscle spasms [Unknown]
  - Sinusitis [Unknown]
  - Fluid retention [Unknown]
  - Nasopharyngitis [Unknown]
  - Malaise [Unknown]
  - Eye irritation [Unknown]
